FAERS Safety Report 9470957 (Version 2)
Quarter: 2013Q3

REPORT INFORMATION
  Report Type: Spontaneous
  Country: DE (occurrence: None)
  Receive Date: 20130815
  Receipt Date: 20130822
  Transmission Date: 20140515
  Serious: Yes (Other)
  Sender: FDA-Public Use
  Company Number: AUR-APL-2013-06704

PATIENT
  Age: 46 Year
  Sex: Female

DRUGS (2)
  1. RISPERIDONE [Suspect]
     Indication: PRODUCT USED FOR UNKNOWN INDICATION
  2. NOVAMINS ULFON (METAMIZOLE SODIUM) [Concomitant]

REACTIONS (6)
  - Pelvic infection [None]
  - Hypertension [None]
  - Headache [None]
  - Influenza like illness [None]
  - Pharyngitis [None]
  - Rhinitis [None]
